FAERS Safety Report 24295400 (Version 1)
Quarter: 2024Q3

REPORT INFORMATION
  Report Type: Spontaneous
  Country: AE (occurrence: AE)
  Receive Date: 20240908
  Receipt Date: 20240908
  Transmission Date: 20241017
  Serious: Yes (Life-Threatening, Hospitalization, Other)
  Sender: MACLEODS
  Company Number: AE-MACLEODS PHARMA-MAC2024049153

PATIENT

DRUGS (4)
  1. METFORMIN [Suspect]
     Active Substance: METFORMIN HYDROCHLORIDE
     Indication: Type 2 diabetes mellitus
     Dosage: EVERY 12 HOUR
     Route: 065
  2. ALOGLIPTIN [Concomitant]
     Active Substance: ALOGLIPTIN
     Indication: Type 2 diabetes mellitus
     Dosage: EVERY 12 HOUR
     Route: 065
  3. EMPAGLIFLOZIN [Concomitant]
     Active Substance: EMPAGLIFLOZIN
     Indication: Type 2 diabetes mellitus
     Route: 065
  4. Methylcobalmin [Concomitant]
     Indication: Type 2 diabetes mellitus
     Route: 065

REACTIONS (2)
  - Haemolysis [Recovered/Resolved]
  - Haemolytic anaemia [Recovered/Resolved]
